FAERS Safety Report 4553437-4 (Version None)
Quarter: 2005Q1

REPORT INFORMATION
  Report Type: 
  Country: None (occurrence: None)
  Receive Date: 20050112
  Receipt Date: 20050107
  Transmission Date: 20050727
  Serious: Yes (Other)
  Sender: FDA-Public Use
  Company Number: KII-2005-0014566

PATIENT
  Age: 30 Year
  Sex: Male

DRUGS (5)
  1. OXYCONTIN [Suspect]
     Dosage: ORAL
     Route: 048
  2. BENZODIAZEPINE DERIVATIVES [Suspect]
     Dosage: ORAL
     Route: 048
  3. ACETAMINOPHEN AND HYDROCODONE BITARTRATE [Suspect]
     Dosage: ORAL
     Route: 048
  4. ETHANOL (ETHANOL) [Suspect]
     Dosage: ORAL
     Route: 048
  5. METHADONE (METHADONE) [Suspect]

REACTIONS (5)
  - BLOOD PRESSURE DIASTOLIC INCREASED [None]
  - HEART RATE INCREASED [None]
  - OVERDOSE [None]
  - PNEUMONIA [None]
  - SOMNOLENCE [None]
